FAERS Safety Report 21694498 (Version 7)
Quarter: 2024Q3

REPORT INFORMATION
  Report Type: Spontaneous
  Country: US (occurrence: US)
  Receive Date: 20221207
  Receipt Date: 20240702
  Transmission Date: 20241017
  Serious: Yes (Other)
  Sender: PFIZER
  Company Number: US-PFIZER INC-PV202200118123

PATIENT
  Age: 67 Year
  Sex: Female

DRUGS (1)
  1. XELJANZ XR [Suspect]
     Active Substance: TOFACITINIB CITRATE
     Dosage: 11 MG, 1X/DAY
     Route: 048

REACTIONS (5)
  - Post procedural infection [Unknown]
  - Post procedural complication [Unknown]
  - Atrophic vulvovaginitis [Unknown]
  - Ear infection [Unknown]
  - Herpes zoster [Unknown]
